FAERS Safety Report 10535204 (Version 3)
Quarter: 2014Q4

REPORT INFORMATION
  Report Type: Spontaneous
  Country: US (occurrence: US)
  Receive Date: 20141022
  Receipt Date: 20141113
  Transmission Date: 20150529
  Serious: Yes (Other)
  Sender: FDA-Public Use
  Company Number: US-PFIZER INC-2014285693

PATIENT
  Sex: Female

DRUGS (3)
  1. LYRICA [Suspect]
     Active Substance: PREGABALIN
     Indication: PAIN
     Dosage: 150 MG, 3X/DAY
     Route: 048
  2. LYRICA [Suspect]
     Active Substance: PREGABALIN
     Dosage: 150 MG, 3X/ MORNING, 2X/ EVENING
     Route: 048
  3. CYMBALTA [Concomitant]
     Active Substance: DULOXETINE HYDROCHLORIDE
     Dosage: UNK

REACTIONS (15)
  - Oedema [Unknown]
  - Malaise [Unknown]
  - Erythema [Unknown]
  - Product label issue [Unknown]
  - Neuropathy peripheral [Not Recovered/Not Resolved]
  - Intentional product misuse [Unknown]
  - Depressed mood [Unknown]
  - Back pain [Unknown]
  - Furuncle [Unknown]
  - Weight decreased [Unknown]
  - Local swelling [Not Recovered/Not Resolved]
  - Weight increased [Recovered/Resolved]
  - Blister [Unknown]
  - Fatigue [Unknown]
  - Pain [Unknown]

NARRATIVE: CASE EVENT DATE: 2014
